FAERS Safety Report 5259052-1 (Version None)
Quarter: 2007Q1

REPORT INFORMATION
  Report Type: 
  Country: None (occurrence: None)
  Receive Date: 20070308
  Receipt Date: 20070221
  Transmission Date: 20070707
  Serious: Yes (Other)
  Sender: FDA-Public Use
  Company Number: US-PFIZER INC-2007015053

PATIENT
  Sex: Female
  Weight: 77.1 kg

DRUGS (5)
  1. CELEBREX [Suspect]
     Indication: ARTHRALGIA
     Route: 048
     Dates: start: 20061129, end: 20061209
  2. EFFEXOR [Suspect]
     Indication: NIGHT SWEATS
     Dates: start: 20061129, end: 20061209
  3. METFORMIN HCL [Concomitant]
  4. STARLIX [Concomitant]
  5. LISINOPRIL [Concomitant]

REACTIONS (1)
  - HALLUCINATION [None]
